FAERS Safety Report 10161122 (Version 3)
Quarter: 2014Q3

REPORT INFORMATION
  Report Type: Spontaneous
  Country: DE (occurrence: DE)
  Receive Date: 20140508
  Receipt Date: 20140714
  Transmission Date: 20150326
  Serious: Yes (Other)
  Sender: FDA-Public Use
  Company Number: DE-GILEAD-2014-0101985

PATIENT
  Age: 74 Year
  Sex: Female
  Weight: 98 kg

DRUGS (6)
  1. RAMIPRIL. [Concomitant]
     Active Substance: RAMIPRIL
     Dosage: 1 DF, QD
  2. METFORMIN [Concomitant]
     Active Substance: METFORMIN HYDROCHLORIDE
     Dosage: 1000 MG, BID
  3. METOPROLOL [Concomitant]
     Active Substance: METOPROLOL
     Dosage: 100 MG, QD
  4. RANOLAZINE [Suspect]
     Active Substance: RANOLAZINE
     Indication: ANGINA PECTORIS
     Dosage: 500 MG, BID
     Route: 048
     Dates: start: 20140403, end: 20140420
  5. PRAVASTATIN [Concomitant]
     Active Substance: PRAVASTATIN\PRAVASTATIN SODIUM
     Dosage: 40 MG, QD
  6. ASPIRIN. [Concomitant]
     Active Substance: ASPIRIN
     Dosage: 100 MG, QD

REACTIONS (3)
  - Hot flush [Recovered/Resolved]
  - Dysphagia [Recovered/Resolved]
  - Tremor [Recovered/Resolved]

NARRATIVE: CASE EVENT DATE: 20140404
